FAERS Safety Report 16529279 (Version 1)
Quarter: 2019Q3

REPORT INFORMATION
  Report Type: Spontaneous
  Country: US (occurrence: US)
  Receive Date: 20190704
  Receipt Date: 20190704
  Transmission Date: 20191004
  Serious: No
  Sender: FDA-Public Use
  Company Number: US-GW PHARMA-201906USGW1920

PATIENT

DRUGS (2)
  1. EPIDIOLEX [Suspect]
     Active Substance: CANNABIDIOL
     Dosage: 330 MILLIGRAM, BID
     Route: 048
     Dates: start: 201905
  2. EPIDIOLEX [Suspect]
     Active Substance: CANNABIDIOL
     Indication: PRODUCT USED FOR UNKNOWN INDICATION
     Dosage: 165 MILLIGRAM, BID
     Route: 048
     Dates: start: 2019, end: 201905

REACTIONS (1)
  - Diarrhoea [Not Recovered/Not Resolved]

NARRATIVE: CASE EVENT DATE: 2019
